FAERS Safety Report 9425420 (Version 1)
Quarter: 2013Q3

REPORT INFORMATION
  Report Type: Spontaneous
  Country: US (occurrence: US)
  Receive Date: 20130729
  Receipt Date: 20130729
  Transmission Date: 20140515
  Serious: Yes (Hospitalization, Other)
  Sender: FDA-Public Use
  Company Number: US-BAYER-2013-088649

PATIENT
  Age: 28 Year
  Sex: Female

DRUGS (10)
  1. YASMIN [Suspect]
  2. LORTAB [Concomitant]
     Indication: PAIN IN EXTREMITY
     Dosage: UNK
     Dates: start: 20050319
  3. AMOXICILLIN W/CLAVULANIC ACID [Concomitant]
     Dosage: 875 MG
  4. PROMETHAZINE [Concomitant]
     Dosage: 25 MG
  5. HYDROCODONE/ACETAMINOPHEN [Concomitant]
     Dosage: 5/500 MG
  6. CIPROFLOXACIN [Concomitant]
     Dosage: 500 MG, UNK
  7. IBUPROFEN [Concomitant]
     Dosage: 600 MG
  8. PEPCID [Concomitant]
  9. COLACE [Concomitant]
  10. PERCOCET [Concomitant]

REACTIONS (3)
  - Thrombophlebitis superficial [None]
  - Pulmonary embolism [None]
  - Deep vein thrombosis [None]
